FAERS Safety Report 25591802 (Version 2)
Quarter: 2025Q3

REPORT INFORMATION
  Report Type: Spontaneous
  Country: EU (occurrence: EU)
  Receive Date: 20250722
  Receipt Date: 20250725
  Transmission Date: 20251021
  Serious: Yes (Hospitalization)
  Sender: BIOMARIN
  Company Number: EU-BIOMARINAP-DE-2025-167262

PATIENT
  Age: 4 Year
  Sex: Male
  Weight: 16 kg

DRUGS (1)
  1. NAGLAZYME [Suspect]
     Active Substance: GALSULFASE
     Indication: Mucopolysaccharidosis VI
     Dosage: 15 MILLIGRAM, QW

REACTIONS (5)
  - Carpal tunnel syndrome [Recovering/Resolving]
  - Stress [Unknown]
  - Extravasation [Unknown]
  - Venous occlusion [Unknown]
  - Poor venous access [Unknown]

NARRATIVE: CASE EVENT DATE: 20250721
